FAERS Safety Report 10792191 (Version 2)
Quarter: 2015Q1

REPORT INFORMATION
  Report Type: Report from Study
  Country: FR (occurrence: None)
  Receive Date: 20150211
  Receipt Date: 20150219
  Transmission Date: 20150721
  Serious: Yes (Hospitalization)
  Sender: FDA-Public Use
  Company Number: KAD201502-000196

PATIENT
  Age: 53 Year
  Sex: Male
  Weight: 60 kg

DRUGS (3)
  1. SOFOSBUVIR (SOFOSBUVIR) [Suspect]
     Active Substance: SOFOSBUVIR
     Route: 048
     Dates: start: 20141128
  2. KARDEGIC (ACETYLSALICYLIC ACID) [Concomitant]
  3. RIBASPHERE [Suspect]
     Active Substance: RIBAVIRIN
     Dosage: 5 TIMES A DAY
     Dates: start: 20141128

REACTIONS (1)
  - Myocardial ischaemia [None]

NARRATIVE: CASE EVENT DATE: 20150129
